FAERS Safety Report 9849876 (Version 1)
Quarter: 2014Q1

REPORT INFORMATION
  Report Type: Spontaneous
  Country: US (occurrence: None)
  Receive Date: 20140124
  Receipt Date: 20140124
  Transmission Date: 20141002
  Serious: Yes (Disabling)
  Sender: FDA-Public Use
  Company Number: None

PATIENT
  Age: 65 Year
  Sex: Female
  Weight: 75.75 kg

DRUGS (1)
  1. PROLIA [Suspect]
     Indication: BONE DISORDER
     Dosage: 1 SHOT  EVERY 6 MONTHS
     Dates: start: 20131212

REACTIONS (5)
  - Pain [None]
  - Gait disturbance [None]
  - Arthralgia [None]
  - Pain in extremity [None]
  - Gait disturbance [None]
